FAERS Safety Report 20195386 (Version 8)
Quarter: 2023Q1

REPORT INFORMATION
  Report Type: Report from Study
  Country: DE (occurrence: DE)
  Receive Date: 20211216
  Receipt Date: 20230222
  Transmission Date: 20230417
  Serious: Yes (Hospitalization, Other)
  Sender: FDA-Public Use
  Company Number: DE-002147023-NVSC2021DE158738

PATIENT
  Sex: Female
  Weight: 74 kg

DRUGS (75)
  1. MORPHINE SULFATE [Suspect]
     Active Substance: MORPHINE SULFATE
     Indication: Back pain
     Dosage: 60 MG, DAILY (20 MG, TID)
     Route: 048
     Dates: start: 2010, end: 20210509
  2. MORPHINE SULFATE [Suspect]
     Active Substance: MORPHINE SULFATE
     Indication: Chronic idiopathic pain syndrome
     Dosage: 40 MG, DAILY (10 MG, QID)
     Route: 048
     Dates: start: 20211004
  3. MORPHINE SULFATE [Suspect]
     Active Substance: MORPHINE SULFATE
     Dosage: 30 MG, DAILY (10 MG, TID)
     Route: 048
     Dates: start: 20210510, end: 20210813
  4. MORPHINE SULFATE [Suspect]
     Active Substance: MORPHINE SULFATE
     Dosage: 20 MG, DAILY (10 MG, BID)
     Route: 048
     Dates: start: 20210814, end: 20211003
  5. MORPHINE SULFATE [Suspect]
     Active Substance: MORPHINE SULFATE
     Dosage: 60 MG, DAILY (20 MG, TID)
     Route: 048
     Dates: start: 20211016
  6. MORPHINE SULFATE [Suspect]
     Active Substance: MORPHINE SULFATE
     Dosage: 80 MG, DAILY (20 MG QID)
     Route: 048
     Dates: start: 20220207
  7. MORPHINE SULFATE [Suspect]
     Active Substance: MORPHINE SULFATE
     Dosage: 10 MILLIGRAM, PRN
     Route: 065
     Dates: start: 20220420
  8. MORPHINE SULFATE [Suspect]
     Active Substance: MORPHINE SULFATE
     Dosage: 60 MILLIGRAM, DAILY
     Route: 065
     Dates: start: 20220328
  9. MORPHINE SULFATE [Suspect]
     Active Substance: MORPHINE SULFATE
     Dosage: 20 MG, PRN (AS NEEDED)
     Route: 065
     Dates: start: 20220207, end: 20220419
  10. MORPHINE SULFATE [Suspect]
     Active Substance: MORPHINE SULFATE
     Dosage: 20 MG, EVERY OTHER DAY(20ML/ML)
     Route: 065
  11. COSENTYX [Suspect]
     Active Substance: SECUKINUMAB
     Indication: Psoriatic arthropathy
     Dosage: 300 MG (PER APPLICATION)
     Route: 065
  12. COSENTYX [Suspect]
     Active Substance: SECUKINUMAB
     Dosage: 300 MG (PER APPLICATION)
     Route: 065
     Dates: start: 20211003, end: 20211003
  13. COSENTYX [Suspect]
     Active Substance: SECUKINUMAB
     Dosage: 150 MG (ONCE)
     Route: 058
     Dates: start: 20211003, end: 20211003
  14. COSENTYX [Suspect]
     Active Substance: SECUKINUMAB
     Dosage: 150 MG (ONCE)
     Route: 058
     Dates: start: 20210904, end: 20210904
  15. COSENTYX [Suspect]
     Active Substance: SECUKINUMAB
     Dosage: 150 MG (ONCE)  (PREFILLED PEN, PER APPLICATION)
     Route: 058
     Dates: start: 20210731, end: 20210731
  16. COSENTYX [Suspect]
     Active Substance: SECUKINUMAB
     Dosage: 150 MG (ONCE)
     Route: 058
     Dates: start: 20210703, end: 20210703
  17. COSENTYX [Suspect]
     Active Substance: SECUKINUMAB
     Dosage: 300 MG, QMO (PRE-FILLED PEN)
     Route: 058
     Dates: start: 202010
  18. COSENTYX [Suspect]
     Active Substance: SECUKINUMAB
     Dosage: 300 MG, ONCE
     Route: 065
     Dates: start: 20220220, end: 20220220
  19. COSENTYX [Suspect]
     Active Substance: SECUKINUMAB
     Dosage: 300 MG, ONCE
     Route: 065
     Dates: start: 20220115, end: 20220115
  20. COSENTYX [Suspect]
     Active Substance: SECUKINUMAB
     Dosage: 300 MG (PER APPLICATION)
     Route: 065
     Dates: start: 20211122, end: 20211122
  21. COSENTYX [Suspect]
     Active Substance: SECUKINUMAB
     Dosage: 300 MG (ONCE)
     Route: 065
     Dates: start: 20211218, end: 20211218
  22. COSENTYX [Suspect]
     Active Substance: SECUKINUMAB
     Dosage: 300 MG, (PER APPLICATION)
     Route: 065
     Dates: start: 20220319, end: 20220319
  23. COSENTYX [Suspect]
     Active Substance: SECUKINUMAB
     Dosage: 300 MG (ONCE)
     Route: 065
     Dates: start: 20210904, end: 20210904
  24. COSENTYX [Suspect]
     Active Substance: SECUKINUMAB
     Dosage: 150 MG (ONCE)
     Route: 065
     Dates: start: 20210731, end: 20210731
  25. COSENTYX [Suspect]
     Active Substance: SECUKINUMAB
     Dosage: 150 MG (ONCE)
     Route: 065
     Dates: start: 20210703, end: 20210703
  26. COSENTYX [Suspect]
     Active Substance: SECUKINUMAB
     Dosage: 300 MILLIGRAM
     Route: 065
     Dates: start: 20220319
  27. COSENTYX [Suspect]
     Active Substance: SECUKINUMAB
     Dosage: 150 MG, QMO
     Route: 065
     Dates: start: 201610, end: 202010
  28. COSENTYX [Suspect]
     Active Substance: SECUKINUMAB
     Dosage: 300 MG (ONCE)
     Route: 065
     Dates: start: 20220416
  29. CHOLECALCIFEROL [Concomitant]
     Active Substance: CHOLECALCIFEROL
     Indication: Osteoporosis prophylaxis
     Dosage: 20000 IU, QW
     Dates: start: 2020
  30. ZINC ASPARTATE [Concomitant]
     Active Substance: ZINC ASPARTATE
     Indication: Multi-vitamin deficiency
     Dosage: 1 DF, QD (50)
     Dates: start: 20210725
  31. ZINC ASPARTATE [Concomitant]
     Active Substance: ZINC ASPARTATE
     Indication: Multi-vitamin deficiency
  32. MUCOFALK                           /00029101/ [Concomitant]
     Indication: Gastrointestinal motility disorder
     Dosage: 5 MG, DAILY (QD)
     Route: 048
     Dates: start: 2017, end: 20210426
  33. MUCOFALK                           /00029101/ [Concomitant]
     Dosage: 5 MG, DAILY (QD)
     Route: 048
     Dates: start: 20210514
  34. AMLODIPINE [Concomitant]
     Active Substance: AMLODIPINE BESYLATE
     Indication: Hypertension
     Dosage: 5 MG, QD
     Dates: start: 20210515, end: 20210522
  35. AMLODIPINE [Concomitant]
     Active Substance: AMLODIPINE BESYLATE
     Indication: Hypertension
  36. METAMIZOLE [Concomitant]
     Active Substance: METAMIZOLE
     Indication: Psoriatic arthropathy
     Dosage: 500 MG, PRN  (AS NEEDED)
     Dates: start: 2019
  37. METAMIZOLE [Concomitant]
     Active Substance: METAMIZOLE
     Indication: Chronic idiopathic pain syndrome
  38. METAMIZOLE [Concomitant]
     Active Substance: METAMIZOLE
     Indication: Psoriatic arthropathy
  39. METAMIZOLE [Concomitant]
     Active Substance: METAMIZOLE
     Indication: Chronic idiopathic pain syndrome
  40. ZOPICLONE [Concomitant]
     Active Substance: ZOPICLONE
     Indication: Sleep disorder
     Dosage: 7.5 MG, PRN (AS NEEDED)
     Route: 048
     Dates: start: 20210515, end: 202203
  41. ZOPICLONE [Concomitant]
     Active Substance: ZOPICLONE
     Indication: Sleep disorder
  42. FOLIC ACID [Concomitant]
     Active Substance: FOLIC ACID
     Indication: Prophylaxis
     Dosage: 5 MG, QD
     Dates: start: 2007, end: 20211018
  43. FOLIC ACID [Concomitant]
     Active Substance: FOLIC ACID
     Indication: Prophylaxis
  44. OXAZEPAM [Concomitant]
     Active Substance: OXAZEPAM
     Indication: Anxiety
     Dosage: 10 MG, BID
     Dates: start: 2017, end: 20210509
  45. OXAZEPAM [Concomitant]
     Active Substance: OXAZEPAM
     Indication: Anxiety
  46. LACTOSE [Concomitant]
     Active Substance: LACTOSE
     Indication: Gastrointestinal motility disorder
     Dosage: UNK (1 TABLESPOON AS NEEDED)
     Route: 048
     Dates: start: 20210515
  47. LACTOSE [Concomitant]
     Active Substance: LACTOSE
     Indication: Gastrointestinal motility disorder
     Dosage: 1 DOSAGE FORM, PRN (1 TABLESPOON AS NEEDED)
     Dates: start: 20210515
  48. CELECOXIB [Concomitant]
     Active Substance: CELECOXIB
     Indication: Psoriatic arthropathy
     Dosage: 200 MG, BID
     Dates: start: 2017
  49. CELECOXIB [Concomitant]
     Active Substance: CELECOXIB
     Indication: Psoriatic arthropathy
  50. CARBAMAZEPINE [Concomitant]
     Active Substance: CARBAMAZEPINE
     Indication: Epilepsy
     Dosage: 600 MG, BID
     Dates: start: 1990
  51. FENTANYL [Concomitant]
     Active Substance: FENTANYL
     Indication: Chronic idiopathic pain syndrome
     Dosage: 100 UG (EVERY THIRD DAY)
     Dates: start: 2015, end: 20210509
  52. FENTANYL [Concomitant]
     Active Substance: FENTANYL
     Indication: Chronic idiopathic pain syndrome
     Dosage: 100 MG /100 ?G, EVERY THIRD DAY
     Route: 062
     Dates: start: 2015
  53. PANTOPRAZOLE [Concomitant]
     Active Substance: PANTOPRAZOLE
     Indication: Gastritis prophylaxis
     Dosage: 40 MG, QD
     Dates: start: 2012
  54. VITAMIN B12 [Concomitant]
     Active Substance: CYANOCOBALAMIN
     Indication: Vitamin B12 deficiency
     Dosage: UNK, Q4W
     Dates: start: 202105
  55. ESTRAMON                           /00045401/ [Concomitant]
     Indication: Hormone replacement therapy
     Dosage: 50 MCG, UNK (50 UG EVERY 3 DAYS)
     Route: 061
     Dates: start: 1995, end: 20210803
  56. METOPROLOL SUCCINATE [Concomitant]
     Active Substance: METOPROLOL SUCCINATE
     Indication: Tachycardia
     Dosage: 23.75 MG, QD
     Dates: start: 20210517
  57. PREDNISOLONE [Concomitant]
     Active Substance: PREDNISOLONE
     Indication: Psoriatic arthropathy
     Dosage: 5 MG, QD
     Route: 048
     Dates: start: 20210420, end: 20211018
  58. PREDNISOLONE [Concomitant]
     Active Substance: PREDNISOLONE
     Indication: Axial spondyloarthritis
     Dosage: 10 MG, QD
     Dates: start: 20211019
  59. PREDNISOLONE [Concomitant]
     Active Substance: PREDNISOLONE
     Indication: Psoriatic arthropathy
  60. PREDNISOLONE [Concomitant]
     Active Substance: PREDNISOLONE
     Indication: Axial spondyloarthritis
  61. OXYTETRACYCLINE [Concomitant]
     Active Substance: OXYTETRACYCLINE
     Indication: Influenza immunisation
     Dosage: 0.5 ML, DAILY
     Route: 030
     Dates: start: 20211115, end: 20211115
  62. TETRA                              /00484801/ [Concomitant]
     Indication: Influenza immunisation
     Dosage: 0.5 ML, DAILY
     Route: 030
     Dates: start: 20211115, end: 20211115
  63. MORPHIN ARISTO [Concomitant]
     Indication: Chronic idiopathic pain syndrome
     Dosage: 20 MG, PRN (AS NEEDED)
     Route: 048
     Dates: start: 20220207, end: 20220419
  64. MORPHIN ARISTO [Concomitant]
     Indication: Chronic idiopathic pain syndrome
     Dosage: 20 MG, EVERY OTHER DAY(20ML/ML)
     Dates: start: 20220420
  65. MORPHIN ARISTO [Concomitant]
     Indication: Back pain
  66. MOVICOL [Concomitant]
     Active Substance: POLYETHYLENE GLYCOL 3350\POTASSIUM CHLORIDE\SODIUM BICARBONATE\SODIUM CHLORIDE
     Indication: Gastrointestinal examination abnormal
     Dosage: UNK (1 BAG AS NEEDED)
     Route: 048
     Dates: start: 202111
  67. PARACETAMOL COMP                   /00271101/ [Concomitant]
     Indication: Chronic idiopathic pain syndrome
     Dosage: 1 DF, UNKNOWN (AS NEEDED)
     Route: 048
     Dates: start: 20210614
  68. Mucofalk [Concomitant]
     Indication: Gastrointestinal motility disorder
     Dosage: 5 MG, QD
     Dates: start: 20210514
  69. Mucofalk [Concomitant]
     Dosage: 5 MG, QD
     Dates: start: 2017, end: 20210426
  70. ZOPICLONE AXCOUNT [Concomitant]
     Indication: Sleep disorder
     Dosage: 7.5 MG, PRN (AS NEEDED)
     Dates: start: 20210515, end: 202203
  71. Estramon [Concomitant]
     Indication: Hormone replacement therapy
     Dosage: 50 UG EVERY 3 DAYS
     Dates: start: 1995, end: 20210803
  72. Paracetamol Comp [Concomitant]
     Indication: Chronic idiopathic pain syndrome
     Dosage: 1 DOSAGE FORM, PRN (AS NEEDED)
     Dates: start: 20210614
  73. MOVICOL [Concomitant]
     Active Substance: POLYETHYLENE GLYCOL 3350\POTASSIUM CHLORIDE\SODIUM BICARBONATE\SODIUM CHLORIDE
     Indication: Gastrointestinal examination abnormal
     Dosage: 1 DOSAGE FORM, PRN (1 BAG AS NEEDED)
     Dates: start: 202111
  74. Tetra [Concomitant]
     Indication: Influenza immunisation
     Dosage: 0.5 ML, QD
     Dates: start: 20211115, end: 20211115
  75. Tetra [Concomitant]
     Indication: Influenza immunisation

REACTIONS (16)
  - Bowen^s disease [Not Recovered/Not Resolved]
  - Ileus [Recovered/Resolved]
  - Ileus paralytic [Recovered/Resolved]
  - Urinary incontinence [Unknown]
  - Arthralgia [Recovering/Resolving]
  - Constipation [Recovered/Resolved]
  - Nasopharyngitis [Recovered/Resolved]
  - Gastrointestinal infection [Recovered/Resolved]
  - Norovirus infection [Recovered/Resolved]
  - Oedema [Recovered/Resolved]
  - Urinary tract infection [Recovered/Resolved]
  - Urinary tract infection [Recovered/Resolved]
  - Urinary tract infection [Recovered/Resolved]
  - Psoriasis [Recovered/Resolved]
  - Back pain [Not Recovered/Not Resolved]
  - Vitamin B12 deficiency [Recovered/Resolved]

NARRATIVE: CASE EVENT DATE: 20210426
